FAERS Safety Report 20530484 (Version 5)
Quarter: 2022Q2

REPORT INFORMATION
  Report Type: Spontaneous
  Country: US (occurrence: US)
  Receive Date: 20220301
  Receipt Date: 20220513
  Transmission Date: 20220721
  Serious: Yes (Other)
  Sender: FDA-Public Use
  Company Number: US-EyePoint Pharmaceuticals, Inc.-US-EYP-22-00021

PATIENT
  Age: 73 Year
  Sex: Female

DRUGS (1)
  1. DEXYCU [Suspect]
     Active Substance: DEXAMETHASONE
     Dosage: 0.005ML OF 9 % DEXYMETHASONE, IN THE RIGHT EYE/OD
     Route: 031
     Dates: start: 20220210, end: 20220210

REACTIONS (18)
  - Corneal degeneration [Unknown]
  - Corneal defect [Not Recovered/Not Resolved]
  - Corneal erosion [Not Recovered/Not Resolved]
  - Corneal oedema [Recovered/Resolved]
  - Pupillary deformity [Not Recovered/Not Resolved]
  - Product solubility abnormal [Not Recovered/Not Resolved]
  - Lacrimation increased [Unknown]
  - Corneal epithelium defect [Unknown]
  - Toxicity to various agents [None]
  - Iris disorder [Not Recovered/Not Resolved]
  - Pupillary deformity [Unknown]
  - Pain [Unknown]
  - Visual impairment [Not Recovered/Not Resolved]
  - Iritis [Unknown]
  - Device dislocation [Not Recovered/Not Resolved]
  - Overdose [Unknown]
  - Off label use [Unknown]
  - Product residue present [Unknown]

NARRATIVE: CASE EVENT DATE: 20220401
